FAERS Safety Report 6485773-9 (Version None)
Quarter: 2009Q4

REPORT INFORMATION
  Report Type: 
  Country: None (occurrence: None)
  Receive Date: 20091207
  Receipt Date: 20091125
  Transmission Date: 20100525
  Serious: Yes (Death)
  Sender: FDA-Public Use
  Company Number: 2009SP003185

PATIENT
  Sex: Male

DRUGS (1)
  1. LUNESTA [Suspect]
     Dosage: ;ORAL
     Route: 048

REACTIONS (1)
  - DEATH [None]
